FAERS Safety Report 5279794-1 (Version None)
Quarter: 2007Q1

REPORT INFORMATION
  Report Type: 
  Country: None (occurrence: None)
  Receive Date: 20061220
  Receipt Date: 20051123
  Transmission Date: 20070707
  Serious: Yes (Hospitalization)
  Sender: FDA-Public Use
  Company Number: 246989

PATIENT
  Age: 30 Year
  Sex: Female
  Weight: 83.9 kg

DRUGS (3)
  1. NOVOLOG MIX 70/30 [Suspect]
     Indication: INSULIN-REQUIRING TYPE II DIABETES MELLITUS
     Dosage: SEE IMAGE
     Route: 058
     Dates: start: 20050301, end: 20050914
  2. NOVOLOG MIX 70/30 [Suspect]
     Indication: INSULIN-REQUIRING TYPE II DIABETES MELLITUS
     Dosage: SEE IMAGE
     Route: 058
     Dates: start: 20050915
  3. NOVOFINE 31 (NEEDLE) [Concomitant]

REACTIONS (1)
  - BLOOD GLUCOSE INCREASED [None]
